FAERS Safety Report 7299438-7 (Version None)
Quarter: 2011Q1

REPORT INFORMATION
  Report Type: 
  Country: None (occurrence: None)
  Receive Date: 20110217
  Receipt Date: 20110211
  Transmission Date: 20110831
  Serious: Yes (Hospitalization)
  Sender: FDA-Public Use
  Company Number: B0700061A

PATIENT
  Age: 56 Year
  Sex: Male

DRUGS (1)
  1. AVANDIA [Suspect]
     Dosage: 4MG PER DAY
     Route: 048
     Dates: start: 20050328, end: 20080816

REACTIONS (3)
  - MYOCARDIAL ISCHAEMIA [None]
  - FLUID RETENTION [None]
  - CORONARY ARTERY DISEASE [None]
